FAERS Safety Report 6648129-1 (Version None)
Quarter: 2010Q1

REPORT INFORMATION
  Report Type: 
  Country: None (occurrence: None)
  Receive Date: 20100324
  Receipt Date: 20100312
  Transmission Date: 20100710
  Serious: Yes (Hospitalization, Other)
  Sender: FDA-Public Use
  Company Number: PHHY2010JP15679

PATIENT
  Sex: Male
  Weight: 70 kg

DRUGS (1)
  1. DIOVAN [Suspect]
     Dosage: 80 MG
     Route: 048
     Dates: start: 20080226, end: 20090727

REACTIONS (4)
  - BLOOD PRESSURE DIASTOLIC INCREASED [None]
  - CEREBRAL INFARCTION [None]
  - DRUG INEFFECTIVE [None]
  - HEART RATE INCREASED [None]
